FAERS Safety Report 12394600 (Version 1)
Quarter: 2016Q2

REPORT INFORMATION
  Report Type: Spontaneous
  Country: US (occurrence: US)
  Receive Date: 20160523
  Receipt Date: 20160523
  Transmission Date: 20160815
  Serious: No
  Sender: FDA-Public Use
  Company Number: US-MDT-ADR-2016-00919

PATIENT
  Age: 69 Year
  Sex: Female

DRUGS (2)
  1. BACLOFEN. [Suspect]
     Active Substance: BACLOFEN
     Dosage: 250 MCG/DAY
     Route: 037
  2. NEURONTIN [Suspect]
     Active Substance: GABAPENTIN
     Dosage: 3X A DAY

REACTIONS (4)
  - Disease progression [Unknown]
  - Somnolence [Unknown]
  - Gait disturbance [Unknown]
  - Performance status decreased [Unknown]

NARRATIVE: CASE EVENT DATE: 20140514
